FAERS Safety Report 21009905 (Version 1)
Quarter: 2022Q2

REPORT INFORMATION
  Report Type: Spontaneous
  Country: US (occurrence: US)
  Receive Date: 20220627
  Receipt Date: 20220627
  Transmission Date: 20220721
  Serious: No
  Sender: FDA-Public Use
  Company Number: ALC2021US003520

PATIENT
  Sex: Female

DRUGS (2)
  1. PATADAY TWICE A DAY RELIEF [Suspect]
     Active Substance: OLOPATADINE HYDROCHLORIDE
     Indication: Eye pruritus
     Dosage: STARTED APPROXIMATELY 2 MONTHS AGO
     Route: 047
  2. PATADAY TWICE A DAY RELIEF [Suspect]
     Active Substance: OLOPATADINE HYDROCHLORIDE
     Indication: Eye allergy
     Dosage: UNK
     Route: 047

REACTIONS (1)
  - Drug ineffective [Recovered/Resolved]
